FAERS Safety Report 6828734-X (Version None)
Quarter: 2010Q3

REPORT INFORMATION
  Report Type: 
  Country: None (occurrence: None)
  Receive Date: 20100709
  Receipt Date: 20070217
  Transmission Date: 20110219
  Serious: No
  Sender: FDA-Public Use
  Company Number: US-PFIZER INC-2007013342

PATIENT
  Sex: Female
  Weight: 65.77 kg

DRUGS (6)
  1. CHANTIX [Suspect]
     Indication: SMOKING CESSATION THERAPY
     Dates: start: 20070213
  2. LEXAPRO [Concomitant]
  3. THYROID TAB [Concomitant]
  4. ESTRACE [Concomitant]
  5. VITAMINS [Concomitant]
  6. ALL OTHER THERAPEUTIC PRODUCTS [Concomitant]
     Route: 055

REACTIONS (4)
  - ABNORMAL DREAMS [None]
  - DRY MOUTH [None]
  - HEADACHE [None]
  - INSOMNIA [None]
